FAERS Safety Report 15819442 (Version 1)
Quarter: 2019Q1

REPORT INFORMATION
  Report Type: Spontaneous
  Country: HR (occurrence: HR)
  Receive Date: 20190114
  Receipt Date: 20190114
  Transmission Date: 20190417
  Serious: Yes (Other)
  Sender: FDA-Public Use
  Company Number: HR-ROCHE-2240974

PATIENT
  Age: 16 Year
  Sex: Female

DRUGS (3)
  1. LOQUEN [Concomitant]
     Active Substance: QUETIAPINE FUMARATE
     Route: 048
  2. RIVOTRIL [Suspect]
     Active Substance: CLONAZEPAM
     Indication: PRODUCT USED FOR UNKNOWN INDICATION
     Route: 048
     Dates: start: 20181122, end: 20181122
  3. FEVARIN [Concomitant]
     Active Substance: FLUVOXAMINE MALEATE
     Route: 048

REACTIONS (2)
  - Suicide attempt [Unknown]
  - Somnolence [Unknown]

NARRATIVE: CASE EVENT DATE: 20181122
